FAERS Safety Report 18298108 (Version 6)
Quarter: 2020Q4

REPORT INFORMATION
  Report Type: Spontaneous
  Country: CA (occurrence: CA)
  Receive Date: 20200923
  Receipt Date: 20201219
  Transmission Date: 20210113
  Serious: Yes (Other)
  Sender: FDA-Public Use
  Company Number: CA-CELLTRION INC.-2020CA018874

PATIENT

DRUGS (13)
  1. INFLECTRA [Suspect]
     Active Substance: INFLIXIMAB-DYYB
     Dosage: 400 MG, 0, 2, 6 WEEKS, THEN EVERY 8 WEEKS
     Route: 042
     Dates: start: 20200220
  2. INFLECTRA [Suspect]
     Active Substance: INFLIXIMAB-DYYB
     Dosage: 400 MG 0, 2, 6 WEEKS, THEN EVERY 4 WEEKS
     Route: 042
     Dates: start: 20200724
  3. INFLECTRA [Suspect]
     Active Substance: INFLIXIMAB-DYYB
     Dosage: 400 MG, 0, 2, 6 WEEKS, THEN EVERY 8 WEEKS
     Route: 042
     Dates: start: 20200220
  4. INFLECTRA [Suspect]
     Active Substance: INFLIXIMAB-DYYB
     Dosage: 400 MG, 0, 2, 6 WEEKS, THEN EVERY 4 WEEKS
     Route: 042
     Dates: start: 20200513
  5. INFLECTRA [Suspect]
     Active Substance: INFLIXIMAB-DYYB
     Dosage: 400 MG Q 0, 2, 6 WEEKS, THEN EVERY 4 WEEKS
     Route: 042
     Dates: start: 20201210
  6. INFLECTRA [Suspect]
     Active Substance: INFLIXIMAB-DYYB
     Dosage: 400 MG 0, 2, 6 WEEKS, THEN EVERY 4 WEEKS
     Route: 042
     Dates: start: 20200625
  7. INFLECTRA [Suspect]
     Active Substance: INFLIXIMAB-DYYB
     Dosage: 400 MG 0, 2, 6 WEEKS, THEN EVERY 4 WEEKS
     Route: 042
     Dates: start: 20200825
  8. INFLECTRA [Suspect]
     Active Substance: INFLIXIMAB-DYYB
     Dosage: 400 MG 0, 2, 6 WEEKS, THEN EVERY 4 WEEKS
     Route: 042
     Dates: start: 20201020, end: 20201117
  9. INFLECTRA [Suspect]
     Active Substance: INFLIXIMAB-DYYB
     Indication: COLITIS ULCERATIVE
     Dosage: 400 MG, 0, 2, 6 WEEKS, THEN EVERY 8 WEEKS
     Route: 042
     Dates: start: 20200205
  10. INFLECTRA [Suspect]
     Active Substance: INFLIXIMAB-DYYB
     Dosage: 400 MG, 0, 2, 6 WEEKS, THEN EVERY 8 WEEKS
     Route: 042
     Dates: start: 20200220
  11. INFLECTRA [Suspect]
     Active Substance: INFLIXIMAB-DYYB
     Dosage: 400 MG, 0, 2, 6 WEEKS, THEN EVERY 8 WEEKS
     Route: 042
     Dates: start: 20200317
  12. INFLECTRA [Suspect]
     Active Substance: INFLIXIMAB-DYYB
     Dosage: 400 MG, 0, 2, 6 WEEKS, THEN EVERY 4 WEEKS
     Route: 042
     Dates: start: 20200528
  13. INFLECTRA [Suspect]
     Active Substance: INFLIXIMAB-DYYB
     Dosage: 400 MG Q 0, 2, 6 WEEKS, THEN EVERY 4 WEEKS
     Route: 042
     Dates: start: 20201126

REACTIONS (9)
  - Arthralgia [Unknown]
  - Faecal calprotectin increased [Unknown]
  - Clostridium difficile infection [Unknown]
  - Intentional product use issue [Unknown]
  - Product use issue [Unknown]
  - Off label use [Unknown]
  - Cough [Unknown]
  - Oral herpes [Unknown]
  - Dizziness [Unknown]

NARRATIVE: CASE EVENT DATE: 20200205
